FAERS Safety Report 7327835-X (Version None)
Quarter: 2011Q1

REPORT INFORMATION
  Report Type: 
  Country: None (occurrence: None)
  Receive Date: 20110303
  Receipt Date: 20110301
  Transmission Date: 20110831
  Serious: No
  Sender: FDA-Public Use
  Company Number: US-PFIZER INC-2011044957

PATIENT
  Sex: Male
  Weight: 98 kg

DRUGS (1)
  1. ADVIL LIQUI-GELS [Suspect]
     Indication: NASAL CONGESTION
     Dosage: 200 MG, 2X/DAY
     Route: 048
     Dates: start: 20110226, end: 20110228

REACTIONS (1)
  - DRUG INEFFECTIVE [None]
